FAERS Safety Report 4723164-9 (Version None)
Quarter: 2005Q3

REPORT INFORMATION
  Report Type: 
  Country: None (occurrence: None)
  Receive Date: 20050719
  Receipt Date: 20040803
  Transmission Date: 20060218
  Serious: Yes (Hospitalization, Other)
  Sender: FDA-Public Use
  Company Number: 2004227029US

PATIENT
  Age: 79 Year
  Sex: Female
  Weight: 68 kg

DRUGS (13)
  1. CELEBREX [Suspect]
     Indication: ARTHRITIS
     Dosage: SEE IMAGE
     Route: 065
  2. ZOCOR [Concomitant]
  3. NIACIN [Concomitant]
  4. FISH OIL (FISH OIL) [Concomitant]
  5. GLUCOSAMINE [Concomitant]
  6. ASPIRIN [Concomitant]
  7. CYTOTEC [Concomitant]
  8. HYDRALAZINE HCL [Concomitant]
  9. HYDROCHLOROTHIAZIDE [Concomitant]
  10. NEOCALCIT (CALCIUM CITRATE, CALCIUM PHOSPHATE DIBASIC) [Concomitant]
  11. CALTRATE [Concomitant]
  12. PROSCAR [Concomitant]
  13. TAMSULOSIN HYDROCHLORIDE (TAMSULOSIN HYDROCHLORIDE) [Concomitant]

REACTIONS (2)
  - DRUG INEFFECTIVE [None]
  - GASTROINTESTINAL HAEMORRHAGE [None]
